FAERS Safety Report 9695690 (Version 1)
Quarter: 2013Q4

REPORT INFORMATION
  Report Type: Spontaneous
  Country: US (occurrence: US)
  Receive Date: 20131119
  Receipt Date: 20131119
  Transmission Date: 20140711
  Serious: Yes (Other)
  Sender: FDA-Public Use
  Company Number: US-B.I. PHARMACEUTICALS,INC./RIDGEFIELD-2013-BI-37374BP

PATIENT
  Age: 81 Year
  Sex: Male
  Weight: 94 kg

DRUGS (13)
  1. AMLODIPINE [Concomitant]
     Indication: HYPERTENSION
     Dosage: 5 MG
     Route: 048
     Dates: start: 2003
  2. OMEPRAZOLE [Concomitant]
     Indication: REFLUX GASTRITIS
     Dosage: 20 MG
     Route: 048
     Dates: start: 2003
  3. METOPROLOL [Concomitant]
     Indication: CARDIAC DISORDER
     Dosage: 50 MG
     Route: 048
  4. LOSARTAN [Concomitant]
     Dosage: 50 MG
     Route: 048
  5. CARBIDOPA-LEVODOPA [Concomitant]
     Indication: TREMOR
     Dosage: STRENGTH: 25-100 MG; DAILY DOSE: 25-100 MG
     Route: 048
     Dates: start: 2012
  6. VITAMIN B 12 [Concomitant]
     Indication: SUPPLEMENTATION THERAPY
     Dosage: 2000 MG
     Route: 048
  7. ASPIRIN [Concomitant]
     Indication: CARDIAC DISORDER
     Dosage: 81 MG
     Route: 048
     Dates: start: 2011
  8. PROCHLORPERAZINE [Concomitant]
     Indication: NAUSEA
     Route: 048
     Dates: start: 201309
  9. JANUVIA [Concomitant]
     Indication: BLOOD CHOLESTEROL INCREASED
     Route: 048
     Dates: start: 2012
  10. JANUVIA [Concomitant]
     Indication: DIABETES MELLITUS
  11. FINASTERIDE [Concomitant]
     Indication: BLADDER DISORDER
     Dosage: 5 MG
     Route: 048
     Dates: start: 2008
  12. PRADAXA [Suspect]
     Indication: ATRIAL FIBRILLATION
     Dosage: 300 MG
     Route: 048
     Dates: start: 2011
  13. FUROSEMIDE [Concomitant]
     Indication: FLUID RETENTION
     Dosage: 40 MG
     Route: 048
     Dates: start: 2003

REACTIONS (1)
  - Lung neoplasm malignant [Not Recovered/Not Resolved]
